FAERS Safety Report 14884329 (Version 2)
Quarter: 2018Q2

REPORT INFORMATION
  Report Type: Spontaneous
  Country: US (occurrence: US)
  Receive Date: 20180511
  Receipt Date: 20180530
  Transmission Date: 20180711
  Serious: Yes (Disabling, Other)
  Sender: FDA-Public Use
  Company Number: US-SA-2018SA124448

PATIENT
  Age: 68 Year
  Sex: Female

DRUGS (2)
  1. LANTUS SOLOSTAR [Suspect]
     Active Substance: INSULIN GLARGINE
     Indication: TYPE 2 DIABETES MELLITUS
     Dosage: UNK UNK,QD
     Route: 058
     Dates: start: 2016
  2. SOLOSTAR [Suspect]
     Active Substance: DEVICE
     Indication: TYPE 2 DIABETES MELLITUS
     Dates: start: 2016

REACTIONS (6)
  - Blood glucose increased [Unknown]
  - Injection site discolouration [Unknown]
  - Vision blurred [Unknown]
  - Device issue [Unknown]
  - Disability [Unknown]
  - Injection site haemorrhage [Unknown]
